FAERS Safety Report 6344882-5 (Version None)
Quarter: 2009Q3

REPORT INFORMATION
  Report Type: 
  Country: None (occurrence: None)
  Receive Date: 20090909
  Receipt Date: 20090827
  Transmission Date: 20100115
  Serious: Yes (Other)
  Sender: FDA-Public Use
  Company Number: AU-RANBAXY-2009US-27311

PATIENT

DRUGS (1)
  1. PARACETAMOL [Suspect]
     Indication: DRUG USE FOR UNKNOWN INDICATION
     Dosage: 50 MG, 4 HOURLY, 2 DAYS APPROX 100 MG/KG/DAY
     Route: 048

REACTIONS (2)
  - DRUG TOXICITY [None]
  - LIVER INJURY [None]
